FAERS Safety Report 18020157 (Version 2)
Quarter: 2020Q3

REPORT INFORMATION
  Report Type: Spontaneous
  Country: GB (occurrence: GB)
  Receive Date: 20200714
  Receipt Date: 20200728
  Transmission Date: 20201103
  Serious: Yes (Other)
  Sender: FDA-Public Use
  Company Number: GB-CELGENEUS-GBR-20200702139

PATIENT
  Age: 73 Year
  Sex: Male
  Weight: 65.7 kg

DRUGS (30)
  1. ZOLADEX LA [Concomitant]
     Active Substance: GOSERELIN ACETATE
     Indication: PROSTATE CANCER
     Dosage: 10.8 MILLIGRAM
     Route: 058
     Dates: start: 2017
  2. GRANISETRON [Concomitant]
     Active Substance: GRANISETRON
     Indication: NAUSEA
     Dosage: 2 MILLIGRAM
     Route: 048
     Dates: start: 20191028
  3. PARACETAMOL [Concomitant]
     Active Substance: ACETAMINOPHEN
     Indication: HEADACHE
  4. GENTAMICIN. [Concomitant]
     Active Substance: GENTAMICIN
     Indication: NEUTROPENIC SEPSIS
  5. NASEPTIN [Concomitant]
     Active Substance: CHLORHEXIDINE HYDROCHLORIDE\NEOMYCIN SULFATE
     Indication: EPISTAXIS
     Route: 045
     Dates: start: 20200313
  6. AZACITIDINE. [Suspect]
     Active Substance: AZACITIDINE
     Indication: ACUTE MYELOID LEUKAEMIA
     Dosage: 75 MILLIGRAM/SQ. METER
     Route: 058
     Dates: start: 20191028, end: 20200616
  7. CO?AMOXICLAV [Concomitant]
     Active Substance: AMOXICILLIN\CLAVULANATE POTASSIUM
     Indication: FALL
     Dosage: 1875 MILLIGRAM
     Route: 048
     Dates: start: 20200501
  8. CO?AMOXICLAV [Concomitant]
     Active Substance: AMOXICILLIN\CLAVULANATE POTASSIUM
     Indication: INJURY
  9. COLECALCIFEROL [Concomitant]
     Active Substance: CHOLECALCIFEROL
     Indication: OSTEOPENIA
  10. CYCLIZINE [Concomitant]
     Active Substance: CYCLIZINE
     Indication: NAUSEA
     Route: 065
     Dates: start: 20200212
  11. PARACETAMOL [Concomitant]
     Active Substance: ACETAMINOPHEN
     Indication: PAIN
     Route: 065
     Dates: start: 20200211
  12. TAZOCIN [Concomitant]
     Active Substance: PIPERACILLIN SODIUM\TAZOBACTAM SODIUM
     Indication: FEBRILE NEUTROPENIA
     Route: 041
     Dates: start: 20200319
  13. TRANEXAMIC [Concomitant]
     Active Substance: TRANEXAMIC ACID
     Indication: GINGIVAL BLEEDING
  14. TRANEXAMIC [Concomitant]
     Active Substance: TRANEXAMIC ACID
     Indication: HAEMORRHAGE
  15. LAXIDO [Concomitant]
     Active Substance: POLYETHYLENE GLYCOL 3350\POTASSIUM CHLORIDE\SODIUM BICARBONATE\SODIUM CHLORIDE
     Indication: CONSTIPATION
     Dosage: 1?2 SACHET (FORM OF ADMINISTRATION)
     Route: 048
     Dates: start: 20191114
  16. MEROPENEM. [Concomitant]
     Active Substance: MEROPENEM
     Indication: PRODUCT USED FOR UNKNOWN INDICATION
     Route: 040
     Dates: start: 20200402
  17. CODEINE [Concomitant]
     Active Substance: CODEINE
     Indication: PAIN
     Route: 041
     Dates: start: 20200501
  18. COLECALCIFEROL [Concomitant]
     Active Substance: CHOLECALCIFEROL
     Indication: VITAMIN D DEFICIENCY
     Dosage: 1600 IU (INTERNATIONAL UNIT)
     Route: 048
     Dates: start: 20180117
  19. CO?AMOXICLAV [Concomitant]
     Active Substance: AMOXICILLIN\CLAVULANATE POTASSIUM
     Indication: C-REACTIVE PROTEIN INCREASED
  20. AMBISOME [Concomitant]
     Active Substance: AMPHOTERICIN B
     Indication: FEBRILE NEUTROPENIA
     Dosage: 200 MILLIGRAM
     Route: 041
     Dates: start: 20200406
  21. AMBISOME [Concomitant]
     Active Substance: AMPHOTERICIN B
     Indication: NEUTROPENIC SEPSIS
  22. GRANISETRON [Concomitant]
     Active Substance: GRANISETRON
     Indication: VOMITING
  23. PARACETAMOL [Concomitant]
     Active Substance: ACETAMINOPHEN
     Indication: PYREXIA
     Route: 065
     Dates: start: 20191109
  24. CYCLIZINE [Concomitant]
     Active Substance: CYCLIZINE
     Indication: VOMITING
  25. TAZOCIN [Concomitant]
     Active Substance: PIPERACILLIN SODIUM\TAZOBACTAM SODIUM
     Indication: NEUTROPENIC SEPSIS
  26. GENTAMICIN. [Concomitant]
     Active Substance: GENTAMICIN
     Indication: FEBRILE NEUTROPENIA
     Dosage: 300 MILLIGRAM
     Route: 041
     Dates: start: 20200319
  27. AZACITIDINE. [Suspect]
     Active Substance: AZACITIDINE
     Dosage: 75 MILLIGRAM/SQ. METER
     Route: 058
     Dates: start: 2020, end: 20200626
  28. PRACINOSTAT OR PLACEBO [Concomitant]
     Indication: ACUTE MYELOID LEUKAEMIA
     Dosage: 60 MILLIGRAM
     Route: 065
     Dates: start: 20191028, end: 20200626
  29. TRANEXAMIC [Concomitant]
     Active Substance: TRANEXAMIC ACID
     Indication: EPISTAXIS
     Dosage: 3 GRAM
     Route: 048
     Dates: start: 20191030
  30. MOVICOL [Concomitant]
     Active Substance: POLYETHYLENE GLYCOL 3350\POTASSIUM CHLORIDE\SODIUM BICARBONATE\SODIUM CHLORIDE
     Indication: CONSTIPATION
     Dosage: 1?2 SACHET
     Route: 048
     Dates: start: 20191114

REACTIONS (1)
  - Epistaxis [Recovered/Resolved]

NARRATIVE: CASE EVENT DATE: 20200627
